FAERS Safety Report 18281446 (Version 1)
Quarter: 2020Q3

REPORT INFORMATION
  Report Type: Spontaneous
  Country: US (occurrence: US)
  Receive Date: 20200918
  Receipt Date: 20200918
  Transmission Date: 20201103
  Serious: No
  Sender: FDA-Public Use
  Company Number: US-SA-2020SA251304

PATIENT

DRUGS (1)
  1. XYZAL [Suspect]
     Active Substance: LEVOCETIRIZINE DIHYDROCHLORIDE
     Indication: MYCOTIC ALLERGY
     Dosage: UNK

REACTIONS (5)
  - Epistaxis [Unknown]
  - Dry mouth [Unknown]
  - Feeling abnormal [Unknown]
  - Hypersomnia [Unknown]
  - Somnolence [Unknown]
